FAERS Safety Report 4466811-1 (Version None)
Quarter: 2004Q4

REPORT INFORMATION
  Report Type: 
  Country: None (occurrence: None)
  Receive Date: 20041006
  Receipt Date: 20030905
  Transmission Date: 20050328
  Serious: Yes (Disabling, Other)
  Sender: FDA-Public Use
  Company Number: US-BRISTOL-MYERS SQUIBB COMPANY-12418893

PATIENT
  Age: 51 Year
  Sex: Female

DRUGS (16)
  1. ESTRACE [Suspect]
     Indication: HORMONE REPLACEMENT THERAPY
     Route: 048
     Dates: start: 19921117, end: 19990308
  2. ESTRACE [Suspect]
     Route: 067
     Dates: start: 19980602
  3. PREMARIN [Suspect]
     Indication: HORMONE REPLACEMENT THERAPY
     Dosage: 0.9MG STARTING IN 15-FEB-1994; 0.3MG QD 02-NOV-1999 TO 19-JAN-2000; 0.6MG QD 20-JAN-2000
     Route: 048
     Dates: start: 19940215
  4. ESTRATAB [Suspect]
     Indication: HORMONE REPLACEMENT THERAPY
     Route: 048
     Dates: start: 19990308, end: 19991102
  5. PROVERA [Suspect]
     Indication: HORMONE REPLACEMENT THERAPY
     Dosage: 10MG 17-NOV-92 TO 29-MAR-93; 10MG, 1/2-1 TAB 29-MAR-93 TO 06-AUG-93; 2.5MG QD 06-AUG-93
     Dates: start: 19921117
  6. SUDAFED S.A. [Concomitant]
  7. MULTI-VITAMIN [Concomitant]
  8. CHROMIUM [Concomitant]
  9. CALCIUM [Concomitant]
  10. COD LIVER OIL [Concomitant]
  11. VITAMIN E [Concomitant]
  12. MAGNESIUM [Concomitant]
  13. SELENIUM TRACE METAL ADDITIVE [Concomitant]
  14. ASPIRIN [Concomitant]
     Dates: start: 20000221
  15. GINKGO [Concomitant]
  16. VITAMIN D [Concomitant]

REACTIONS (15)
  - BLINDNESS UNILATERAL [None]
  - DIVERTICULUM [None]
  - JOINT EFFUSION [None]
  - KERATOCONJUNCTIVITIS SICCA [None]
  - MACULAR OEDEMA [None]
  - NEOVASCULARISATION [None]
  - OSTEOARTHRITIS [None]
  - OSTEOPENIA [None]
  - OVARIAN CYST [None]
  - RETINAL ISCHAEMIA [None]
  - RETINAL MICROANEURYSMS [None]
  - RETINAL VEIN OCCLUSION [None]
  - RETINOPATHY PROLIFERATIVE [None]
  - VAGINITIS ATROPHIC [None]
  - VITREOUS HAEMORRHAGE [None]
